FAERS Safety Report 19198279 (Version 1)
Quarter: 2021Q2

REPORT INFORMATION
  Report Type: Spontaneous
  Country: AU (occurrence: AU)
  Receive Date: 20210430
  Receipt Date: 20210430
  Transmission Date: 20210717
  Serious: Yes (Hospitalization, Other)
  Sender: FDA-Public Use
  Company Number: AU-SUN PHARMACEUTICAL INDUSTRIES LTD-2021RR-293977

PATIENT
  Age: 26 Year
  Sex: Male

DRUGS (6)
  1. LINCOMYCIN. [Suspect]
     Active Substance: LINCOMYCIN
     Indication: FUNGAL INFECTION
     Dosage: UNK
     Route: 042
  2. SULFASALAZINE. [Suspect]
     Active Substance: SULFASALAZINE
     Indication: CROHN^S DISEASE
     Dosage: UNK
     Route: 065
  3. AMOXICILLIN. [Suspect]
     Active Substance: AMOXICILLIN
     Indication: FUNGAL INFECTION
     Dosage: UNK
     Route: 048
  4. PREDNISONE. [Suspect]
     Active Substance: PREDNISONE
     Indication: CROHN^S DISEASE
     Dosage: UNK
     Route: 065
  5. MEROPENEM. [Suspect]
     Active Substance: MEROPENEM
     Indication: FUNGAL INFECTION
     Dosage: UNK
     Route: 042
  6. PENICILLIN [Suspect]
     Active Substance: PENICILLIN
     Indication: FUNGAL INFECTION
     Dosage: UNK
     Route: 042

REACTIONS (2)
  - Drug ineffective [Unknown]
  - Clostridial sepsis [Unknown]
